FAERS Safety Report 7225442-0 (Version None)
Quarter: 2011Q1

REPORT INFORMATION
  Report Type: 
  Country: None (occurrence: None)
  Receive Date: 20110113
  Receipt Date: 20110104
  Transmission Date: 20110831
  Serious: Yes (Other)
  Sender: FDA-Public Use
  Company Number: EE-BAYER-2011-001824

PATIENT
  Sex: Female

DRUGS (1)
  1. YARINA [Suspect]
     Indication: CONTRACEPTION
     Dosage: UNK
     Route: 048

REACTIONS (5)
  - ANGINA PECTORIS [None]
  - MALAISE [None]
  - LIBIDO DECREASED [None]
  - CONSTIPATION [None]
  - HEADACHE [None]
